FAERS Safety Report 7987888 (Version 11)
Quarter: 2019Q1

REPORT INFORMATION
  Report Type: Spontaneous
  Country: US (occurrence: US)
  Receive Date: 20110613
  Receipt Date: 20190221
  Transmission Date: 20190418
  Serious: Yes (Hospitalization, Other)
  Sender: FDA-Public Use
  Company Number: US-009507513-1106USA00887

PATIENT
  Sex: Female

DRUGS (14)
  1. NIACIN. [Concomitant]
     Active Substance: NIACIN
     Indication: PRODUCT USED FOR UNKNOWN INDICATION
     Dosage: 1 DF, QD
     Route: 048
     Dates: start: 1980
  2. UBIDECARENONE [Concomitant]
     Active Substance: UBIDECARENONE
     Indication: PRODUCT USED FOR UNKNOWN INDICATION
     Dosage: COQ10
     Route: 065
     Dates: start: 1980
  3. BIOTIN [Concomitant]
     Active Substance: BIOTIN
     Indication: PRODUCT USED FOR UNKNOWN INDICATION
     Dosage: 1 DF, QD
     Route: 048
     Dates: start: 1980
  4. POTASSIUM (UNSPECIFIED) [Concomitant]
     Active Substance: POTASSIUM
     Indication: PRODUCT USED FOR UNKNOWN INDICATION
     Dosage: 1 DF, QD
     Route: 065
     Dates: start: 1980
  5. ASCORBIC ACID. [Concomitant]
     Active Substance: ASCORBIC ACID
     Indication: PRODUCT USED FOR UNKNOWN INDICATION
     Dosage: 1 DF, QD
     Route: 048
     Dates: start: 1980
  6. FLAXSEED [Concomitant]
     Active Substance: FLAX SEED
     Indication: PRODUCT USED FOR UNKNOWN INDICATION
     Dosage: 1 DF, QD
     Route: 048
     Dates: start: 1980
  7. ASPIRIN. [Concomitant]
     Active Substance: ASPIRIN
     Indication: PRODUCT USED FOR UNKNOWN INDICATION
     Dosage: 1 DF, QD
     Route: 048
     Dates: start: 1990
  8. CHROMIUM PICOLINATE [Concomitant]
     Active Substance: CHROMIUM PICOLINATE
     Indication: PRODUCT USED FOR UNKNOWN INDICATION
     Dosage: 1 DF, QD
     Route: 065
     Dates: start: 1980
  9. VITAMIN E [Concomitant]
     Active Substance: .ALPHA.-TOCOPHEROL
     Indication: PRODUCT USED FOR UNKNOWN INDICATION
     Dosage: 1 DF, QD
     Route: 048
     Dates: start: 1980
  10. CALCIUM (UNSPECIFIED) [Concomitant]
     Active Substance: CALCIUM
     Indication: PRODUCT USED FOR UNKNOWN INDICATION
     Dosage: 1 DF, QD
     Dates: start: 1980
  11. FOSAMAX [Suspect]
     Active Substance: ALENDRONATE SODIUM
     Indication: OSTEOPOROSIS
     Dosage: 10 MG, QD
     Route: 048
     Dates: start: 19970724
  12. ZINC PICOLINATE [Concomitant]
     Active Substance: ZINC PICOLINATE
     Indication: PRODUCT USED FOR UNKNOWN INDICATION
     Dosage: 1 DF, QD
     Route: 065
     Dates: start: 1980
  13. FOSAMAX [Suspect]
     Active Substance: ALENDRONATE SODIUM
     Indication: OSTEOPOROSIS
     Dosage: 70 MILLIGRAM, QW
     Route: 048
     Dates: start: 199805, end: 2009
  14. GLUCOSAMINE [Concomitant]
     Active Substance: GLUCOSAMINE
     Indication: PRODUCT USED FOR UNKNOWN INDICATION
     Dosage: 1 DF, QD
     Route: 065
     Dates: start: 1980

REACTIONS (66)
  - Impaired healing [Unknown]
  - Device failure [Unknown]
  - Hypercholesterolaemia [Unknown]
  - Nausea [Unknown]
  - Osteoarthritis [Unknown]
  - Vitamin D deficiency [Unknown]
  - Gastritis [Unknown]
  - Constipation [Unknown]
  - Oropharyngeal pain [Unknown]
  - Femur fracture [Unknown]
  - Dyspnoea [Unknown]
  - Aortic arteriosclerosis [Unknown]
  - Dyspnoea [Unknown]
  - Atrioventricular block first degree [Unknown]
  - Fracture nonunion [Unknown]
  - Vomiting [Unknown]
  - Hypothyroidism [Unknown]
  - Intervertebral disc degeneration [Not Recovered/Not Resolved]
  - Hypertriglyceridaemia [Unknown]
  - Presyncope [Unknown]
  - Abdominal pain [Unknown]
  - Arthralgia [Unknown]
  - Adverse drug reaction [Unknown]
  - Nausea [Unknown]
  - Scoliosis [Unknown]
  - Palpitations [Unknown]
  - Nocturia [Not Recovered/Not Resolved]
  - Meniscus injury [Unknown]
  - Syncope [Unknown]
  - Spinal osteoarthritis [Unknown]
  - Rib fracture [Unknown]
  - Gastrointestinal haemorrhage [Unknown]
  - Dyspnoea [Unknown]
  - Fall [Unknown]
  - Anorectal disorder [Unknown]
  - Fall [Unknown]
  - Dehydration [Unknown]
  - Oedema [Unknown]
  - Thrombocytopenia [Unknown]
  - Hypertension [Not Recovered/Not Resolved]
  - Insomnia [Not Recovered/Not Resolved]
  - Body height decreased [Unknown]
  - Pain in extremity [Unknown]
  - Musculoskeletal chest pain [Unknown]
  - Abdominal discomfort [Not Recovered/Not Resolved]
  - Back pain [Not Recovered/Not Resolved]
  - Loss of consciousness [Recovered/Resolved]
  - Respiratory disorder [Unknown]
  - Pancreatitis acute [Unknown]
  - Drug hypersensitivity [Unknown]
  - Gait disturbance [Unknown]
  - Stress urinary incontinence [Unknown]
  - Fall [Unknown]
  - Skin laceration [Unknown]
  - Fatigue [Not Recovered/Not Resolved]
  - Muscular weakness [Unknown]
  - Fracture nonunion [Unknown]
  - Hypokalaemia [Unknown]
  - Thrombocytopenia [Unknown]
  - Supraventricular tachycardia [Unknown]
  - Anaemia postoperative [Unknown]
  - Nausea [Unknown]
  - Lumbar spinal stenosis [Unknown]
  - Spondylitis [Unknown]
  - Conjunctival haemorrhage [Unknown]
  - Clavicle fracture [Unknown]

NARRATIVE: CASE EVENT DATE: 1998
